FAERS Safety Report 8326415 (Version 2)
Quarter: 2014Q2

REPORT INFORMATION
  Report Type: Spontaneous
  Country: US (occurrence: US)
  Receive Date: 20120109
  Receipt Date: 20140508
  Transmission Date: 20141212
  Serious: Yes (Other)
  Sender: FDA-Public Use
  Company Number: US-PFIZER INC-2012004943

PATIENT
  Age: 66 Year
  Sex: Male
  Weight: 81.63 kg

DRUGS (4)
  1. CELEBREX [Suspect]
     Indication: LIMB DISCOMFORT
     Dosage: 200 MG, 1X/DAY
     Route: 048
     Dates: start: 2008
  2. FLOMAX [Suspect]
     Indication: PROSTATOMEGALY
     Dosage: 0.4 MG, 2X/DAY
     Route: 048
     Dates: start: 2006
  3. PRILOSEC [Concomitant]
     Indication: HYPERCHLORHYDRIA
     Dosage: 20 MG, 1X/DAY
     Route: 048
     Dates: start: 1997
  4. AVODART [Concomitant]
     Indication: PROSTATOMEGALY
     Dosage: 0.5 MG, 1X/DAY
     Route: 048
     Dates: end: 2011

REACTIONS (3)
  - Prostate cancer [Recovered/Resolved]
  - Drug ineffective [Unknown]
  - Therapeutic response changed [Unknown]
